FAERS Safety Report 15309182 (Version 1)
Quarter: 2018Q3

REPORT INFORMATION
  Report Type: Spontaneous
  Country: US (occurrence: US)
  Receive Date: 20180811
  Receipt Date: 20180811
  Transmission Date: 20181010
  Serious: Yes (Hospitalization, Disabling)
  Sender: FDA-Public Use
  Company Number: None

PATIENT
  Age: 58 Year
  Sex: Female
  Weight: 81 kg

DRUGS (3)
  1. VALSARTAN 320MG [Suspect]
     Active Substance: VALSARTAN
     Indication: HYPERTENSION
     Dosage: ?          QUANTITY:1 TABLET(S);?
     Dates: start: 20130101, end: 20180811
  2. CHOLESTEROL DRUG [Concomitant]
     Active Substance: UNSPECIFIED INGREDIENT
  3. LEVOTHYROXINE. [Concomitant]
     Active Substance: LEVOTHYROXINE

REACTIONS (5)
  - Malaise [None]
  - Fear [None]
  - Dyspnoea [None]
  - Pyrexia [None]
  - Product use issue [None]

NARRATIVE: CASE EVENT DATE: 20180601
